FAERS Safety Report 9916851 (Version 2)
Quarter: 2014Q1

REPORT INFORMATION
  Report Type: Spontaneous
  Country: US (occurrence: US)
  Receive Date: 20140221
  Receipt Date: 20140221
  Transmission Date: 20141002
  Serious: No
  Sender: FDA-Public Use
  Company Number: US-MYLANLABS-2013S1006908

PATIENT
  Age: 76 Year
  Sex: Female
  Weight: 53.07 kg

DRUGS (6)
  1. HYDROCHLOROTHIAZIDE CAPSULES [Suspect]
     Indication: BLOOD PRESSURE INCREASED
     Route: 048
     Dates: start: 201302, end: 2013
  2. HYDROCHLOROTHIAZIDE CAPSULES [Suspect]
     Indication: BLOOD PRESSURE INCREASED
  3. LABETALOL [Suspect]
     Indication: BLOOD PRESSURE INCREASED
     Route: 048
     Dates: start: 201302
  4. LABETALOL [Suspect]
     Indication: BLOOD PRESSURE INCREASED
     Route: 048
  5. COZAAR [Concomitant]
     Indication: BLOOD PRESSURE INCREASED
  6. ZANTAC [Concomitant]
     Indication: GASTROINTESTINAL DISORDER
     Dates: start: 201302

REACTIONS (9)
  - Dyspnoea [Not Recovered/Not Resolved]
  - Hypotension [Not Recovered/Not Resolved]
  - Fatigue [Not Recovered/Not Resolved]
  - Tinnitus [Not Recovered/Not Resolved]
  - Pruritus [Not Recovered/Not Resolved]
  - Rash [Not Recovered/Not Resolved]
  - Alopecia [Not Recovered/Not Resolved]
  - Trichorrhexis [Not Recovered/Not Resolved]
  - Onychoclasis [Not Recovered/Not Resolved]
